FAERS Safety Report 6216509-4 (Version None)
Quarter: 2009Q2

REPORT INFORMATION
  Report Type: 
  Country: None (occurrence: None)
  Receive Date: 20090605
  Receipt Date: 20090604
  Transmission Date: 20091009
  Serious: Yes (Death, Other)
  Sender: FDA-Public Use
  Company Number: US-ASTRAZENECA-2009UW02889

PATIENT
  Age: 27220 Day
  Sex: Female

DRUGS (2)
  1. SEROQUEL [Suspect]
     Indication: MENTAL DISORDER
     Route: 048
  2. SEROQUEL [Suspect]
     Indication: DEMENTIA
     Route: 048

REACTIONS (4)
  - BEDRIDDEN [None]
  - CACHEXIA [None]
  - DEATH [None]
  - DEHYDRATION [None]
